FAERS Safety Report 14250949 (Version 1)
Quarter: 2017Q4

REPORT INFORMATION
  Report Type: Spontaneous
  Country: US (occurrence: None)
  Receive Date: 20171205
  Receipt Date: 20171205
  Transmission Date: 20180321
  Serious: No
  Sender: FDA-Public Use
  Company Number: None

PATIENT
  Age: 80 Year
  Sex: Female
  Weight: 56.7 kg

DRUGS (6)
  1. FISH OIL [Concomitant]
     Active Substance: FISH OIL
  2. BABY ASPIRIN [Concomitant]
     Active Substance: ASPIRIN
  3. OXYBUTYNIN TABLETS [Suspect]
     Active Substance: OXYBUTYNIN
     Indication: HYPERTONIC BLADDER
     Route: 048
     Dates: start: 20171021, end: 20171101
  4. D3 WITH CALCIUM [Concomitant]
  5. METROPROLOL TARTRATE [Concomitant]
     Active Substance: METOPROLOL TARTRATE
  6. MULTI VITAMINS [Concomitant]
     Active Substance: VITAMINS

REACTIONS (3)
  - Dry mouth [None]
  - Dysgeusia [None]
  - Drug effect incomplete [None]

NARRATIVE: CASE EVENT DATE: 20171021
